FAERS Safety Report 26137615 (Version 1)
Quarter: 2025Q4

REPORT INFORMATION
  Report Type: Spontaneous
  Country: JP (occurrence: JP)
  Receive Date: 20251209
  Receipt Date: 20251209
  Transmission Date: 20260118
  Serious: Yes (Other)
  Sender: BEIGENE
  Company Number: JP-BEONEMEDICINES-BGN-2025-022018

PATIENT
  Age: 80 Year
  Sex: Male

DRUGS (4)
  1. BRUKINSA [Suspect]
     Active Substance: ZANUBRUTINIB
     Indication: Waldenstrom^s macroglobulinaemia
     Dosage: 320 MILLIGRAM (4 CAPSULES)
     Dates: start: 20251031, end: 20251107
  2. BRUKINSA [Suspect]
     Active Substance: ZANUBRUTINIB
     Dosage: 320 MILLIGRAM (4 CAPSULES)
     Route: 048
     Dates: start: 20251031, end: 20251107
  3. BRUKINSA [Suspect]
     Active Substance: ZANUBRUTINIB
     Dosage: 320 MILLIGRAM (4 CAPSULES)
     Route: 048
     Dates: start: 20251031, end: 20251107
  4. BRUKINSA [Suspect]
     Active Substance: ZANUBRUTINIB
     Dosage: 320 MILLIGRAM (4 CAPSULES)
     Dates: start: 20251031, end: 20251107

REACTIONS (1)
  - Disease progression [Unknown]
